FAERS Safety Report 19778385 (Version 1)
Quarter: 2021Q3

REPORT INFORMATION
  Report Type: Spontaneous
  Country: SE (occurrence: SE)
  Receive Date: 20210902
  Receipt Date: 20210902
  Transmission Date: 20211014
  Serious: Yes (Other)
  Sender: FDA-Public Use
  Company Number: SE-ROCHE-2899782

PATIENT
  Age: 90 Year
  Sex: Female

DRUGS (1)
  1. AVASTIN [Suspect]
     Active Substance: BEVACIZUMAB
     Indication: NEOVASCULAR AGE-RELATED MACULAR DEGENERATION
     Dosage: ON 23/JUN/2021,MOST RECENT DOSE
     Route: 047
     Dates: start: 20200925

REACTIONS (2)
  - Non-infectious endophthalmitis [Recovering/Resolving]
  - Anterior chamber inflammation [Recovering/Resolving]

NARRATIVE: CASE EVENT DATE: 20210701
